FAERS Safety Report 9724724 (Version 1)
Quarter: 2013Q4

REPORT INFORMATION
  Report Type: Spontaneous
  Country: GB (occurrence: GB)
  Receive Date: 20131202
  Receipt Date: 20131202
  Transmission Date: 20140711
  Serious: Yes (Congenital Anomaly)
  Sender: FDA-Public Use
  Company Number: GB-MYLANLABS-2013S1025941

PATIENT
  Sex: 0

DRUGS (2)
  1. METFORMIN [Suspect]
     Route: 064
  2. CLOMID [Suspect]
     Route: 064

REACTIONS (2)
  - Exomphalos [Unknown]
  - Exposure during pregnancy [Unknown]
